FAERS Safety Report 25118738 (Version 2)
Quarter: 2025Q1

REPORT INFORMATION
  Report Type: Report from Study
  Country: CA (occurrence: CA)
  Receive Date: 20250325
  Receipt Date: 20250331
  Transmission Date: 20250408
  Serious: Yes (Hospitalization)
  Sender: ABBVIE
  Company Number: CA-ABBVIE-6188083

PATIENT
  Age: 71 Year
  Sex: Male

DRUGS (39)
  1. VENETOCLAX [Suspect]
     Active Substance: VENETOCLAX
     Indication: Acute myeloid leukaemia
     Route: 048
     Dates: start: 20240212, end: 20240212
  2. VENETOCLAX [Suspect]
     Active Substance: VENETOCLAX
     Indication: Acute myeloid leukaemia
     Route: 048
     Dates: start: 20240213, end: 20240213
  3. VENETOCLAX [Suspect]
     Active Substance: VENETOCLAX
     Indication: Acute myeloid leukaemia
     Route: 048
     Dates: start: 20240214, end: 20240310
  4. VENETOCLAX [Suspect]
     Active Substance: VENETOCLAX
     Indication: Acute myeloid leukaemia
     Route: 048
     Dates: start: 20240312, end: 20240408
  5. VENETOCLAX [Suspect]
     Active Substance: VENETOCLAX
     Indication: Acute myeloid leukaemia
     Route: 048
     Dates: start: 20240409, end: 20240422
  6. VENETOCLAX [Suspect]
     Active Substance: VENETOCLAX
     Indication: Acute myeloid leukaemia
     Route: 048
     Dates: start: 20240507, end: 20240520
  7. VENETOCLAX [Suspect]
     Active Substance: VENETOCLAX
     Indication: Acute myeloid leukaemia
     Route: 048
     Dates: start: 20240611, end: 20240624
  8. VENETOCLAX [Suspect]
     Active Substance: VENETOCLAX
     Indication: Acute myeloid leukaemia
     Route: 048
     Dates: start: 20240718, end: 20240731
  9. VENETOCLAX [Suspect]
     Active Substance: VENETOCLAX
     Indication: Acute myeloid leukaemia
     Route: 048
     Dates: start: 20241017, end: 20241030
  10. VENETOCLAX [Suspect]
     Active Substance: VENETOCLAX
     Indication: Acute myeloid leukaemia
     Route: 048
     Dates: start: 20250111, end: 20250123
  11. AZACITIDINE [Suspect]
     Active Substance: AZACITIDINE
     Indication: Acute myeloid leukaemia
     Route: 065
     Dates: start: 20240212, end: 20240218
  12. AZACITIDINE [Suspect]
     Active Substance: AZACITIDINE
     Indication: Acute myeloid leukaemia
     Route: 065
     Dates: start: 20240312, end: 20240318
  13. AZACITIDINE [Suspect]
     Active Substance: AZACITIDINE
     Indication: Acute myeloid leukaemia
     Route: 065
     Dates: start: 20240409, end: 20240415
  14. AZACITIDINE [Suspect]
     Active Substance: AZACITIDINE
     Indication: Acute myeloid leukaemia
     Route: 065
     Dates: start: 20240507, end: 20240513
  15. AZACITIDINE [Suspect]
     Active Substance: AZACITIDINE
     Indication: Acute myeloid leukaemia
     Route: 065
     Dates: start: 20240611, end: 20240617
  16. AZACITIDINE [Suspect]
     Active Substance: AZACITIDINE
     Indication: Acute myeloid leukaemia
     Route: 065
     Dates: start: 20240718, end: 20240724
  17. AZACITIDINE [Suspect]
     Active Substance: AZACITIDINE
     Indication: Acute myeloid leukaemia
     Route: 065
     Dates: start: 20241017, end: 20241023
  18. AZACITIDINE [Suspect]
     Active Substance: AZACITIDINE
     Indication: Acute myeloid leukaemia
     Route: 065
     Dates: start: 20250111, end: 20250117
  19. ACETAMINOPHEN [Concomitant]
     Active Substance: ACETAMINOPHEN
     Indication: Abdominal pain
     Route: 048
     Dates: start: 20240320, end: 20240320
  20. ONDANSETRON [Concomitant]
     Active Substance: ONDANSETRON
     Indication: Abdominal pain
     Route: 042
     Dates: start: 20240320, end: 20240320
  21. ONDANSETRON [Concomitant]
     Active Substance: ONDANSETRON
     Indication: Abdominal pain
     Route: 042
     Dates: start: 20240320, end: 20240320
  22. ONDANSETRON [Concomitant]
     Active Substance: ONDANSETRON
     Indication: Abdominal pain
     Route: 042
     Dates: start: 20250127, end: 20250127
  23. HYDROMORPHONE [Concomitant]
     Active Substance: HYDROMORPHONE
     Indication: Abdominal pain
     Route: 048
     Dates: start: 20240320, end: 20240320
  24. METOCLOPRAMIDE [Concomitant]
     Active Substance: METOCLOPRAMIDE
     Indication: Abdominal pain
     Dates: start: 20240320, end: 20240320
  25. LACTATED RINGERS SOLUTION [Concomitant]
     Active Substance: CALCIUM CHLORIDE\POTASSIUM CHLORIDE\SODIUM CHLORIDE\SODIUM LACTATE
     Indication: Abdominal pain
     Route: 042
     Dates: start: 20240320, end: 20240320
  26. SODIUM CHLORIDE [Concomitant]
     Active Substance: SODIUM CHLORIDE
     Indication: Fluid replacement
     Route: 042
     Dates: start: 20250127
  27. GRANISETRON [Concomitant]
     Active Substance: GRANISETRON
     Indication: Nausea
     Route: 048
     Dates: start: 20250128, end: 20250203
  28. CELECOXIB [Concomitant]
     Active Substance: CELECOXIB
     Indication: Pain
     Route: 048
     Dates: start: 20250128, end: 20250129
  29. MAGNESIUM SULFATE [Concomitant]
     Active Substance: MAGNESIUM SULFATE
     Indication: Abdominal pain
     Route: 042
     Dates: start: 20240127, end: 20240127
  30. BACLOFEN [Concomitant]
     Active Substance: BACLOFEN
     Indication: Abdominal pain
     Route: 048
     Dates: start: 20250128, end: 20250206
  31. POTASSIUM CHLORIDE [Concomitant]
     Active Substance: POTASSIUM CHLORIDE
     Indication: Hypokalaemia
     Dates: start: 20240717, end: 20240717
  32. HEPARIN [Concomitant]
     Active Substance: HEPARIN SODIUM
     Indication: Iron deficiency anaemia
     Route: 042
     Dates: start: 20240224, end: 20240224
  33. COVID-19 vaccine mRNA [Concomitant]
     Indication: Prophylaxis
     Route: 030
  34. COVID-19 vaccine mRNA [Concomitant]
     Indication: Prophylaxis
     Route: 030
  35. COVID-19 vaccine mRNA [Concomitant]
     Indication: Prophylaxis
     Route: 030
  36. COVID-19 vaccine mRNA [Concomitant]
     Indication: Prophylaxis
     Route: 030
  37. COVID-19 vaccine mRNA [Concomitant]
     Indication: Prophylaxis
     Route: 030
  38. COVID-19 vaccine mRNA [Concomitant]
     Indication: Prophylaxis
     Route: 030
  39. COVID-19 vaccine mRNA [Concomitant]
     Indication: Prophylaxis
     Route: 030

REACTIONS (1)
  - Blood culture positive [Recovered/Resolved]

NARRATIVE: CASE EVENT DATE: 20250129
